FAERS Safety Report 26000691 (Version 2)
Quarter: 2025Q4

REPORT INFORMATION
  Report Type: Spontaneous
  Country: JP (occurrence: JP)
  Receive Date: 20251105
  Receipt Date: 20251216
  Transmission Date: 20260118
  Serious: Yes (Life-Threatening)
  Sender: ALEXION PHARMACEUTICALS
  Company Number: JP-ASTRAZENECA-202510JPN031604JP

PATIENT
  Age: 40 Year
  Sex: Female
  Weight: 56.9 kg

DRUGS (4)
  1. IMFINZI [Suspect]
     Active Substance: DURVALUMAB
     Indication: Endometrial cancer
     Dosage: 1120 MILLIGRAM, Q3W, FOR A TOTAL OF 4 DOSES
     Dates: start: 20250423
  2. IMFINZI [Suspect]
     Active Substance: DURVALUMAB
     Dosage: 1500 MILLIGRAM, Q4W, FOR A TOTAL OF 4 DOSES
  3. PACLITAXEL [Concomitant]
     Active Substance: PACLITAXEL
     Dosage: 180 MILLIGRAM PER CUBIC METRE
     Route: 065
  4. CARBOPLATIN [Concomitant]
     Active Substance: CARBOPLATIN
     Dosage: AUC5
     Route: 065

REACTIONS (1)
  - Neutrophil count decreased [Recovering/Resolving]

NARRATIVE: CASE EVENT DATE: 20250619
